FAERS Safety Report 4793830-8 (Version None)
Quarter: 2005Q4

REPORT INFORMATION
  Report Type: 
  Country: None (occurrence: None)
  Receive Date: 20051006
  Receipt Date: 20051006
  Transmission Date: 20060501
  Serious: Yes (Hospitalization)
  Sender: FDA-Public Use
  Company Number: None

PATIENT
  Age: 85 Year
  Sex: Male

DRUGS (1)
  1. DIGOXIN [Suspect]
     Indication: ATRIAL FIBRILLATION
     Dosage: 0.125 MG DAILY PO
     Route: 048

REACTIONS (10)
  - ASTHENIA [None]
  - ATRIAL FLUTTER [None]
  - BRADYCARDIA [None]
  - CONSTIPATION [None]
  - DECREASED APPETITE [None]
  - HAEMODIALYSIS [None]
  - HEART RATE DECREASED [None]
  - NAUSEA [None]
  - OEDEMA PERIPHERAL [None]
  - THERAPEUTIC AGENT TOXICITY [None]
